FAERS Safety Report 7940447-X (Version None)
Quarter: 2011Q4

REPORT INFORMATION
  Report Type: 
  Country: None (occurrence: None)
  Receive Date: 20111128
  Receipt Date: 20111121
  Transmission Date: 20120403
  Serious: Yes (Hospitalization, Other)
  Sender: FDA-Public Use
  Company Number: JP-SP-2011-08682

PATIENT
  Sex: Male

DRUGS (4)
  1. PIRARUBICIN [Concomitant]
  2. GLIMEPIRIDE [Concomitant]
  3. CISPLATIN [Concomitant]
  4. IMMUCYST [Suspect]
     Indication: BLADDER CANCER
     Route: 043
     Dates: start: 20101027, end: 20101215

REACTIONS (3)
  - TUBERCULOSIS BLADDER [None]
  - HYDRONEPHROSIS [None]
  - RENAL IMPAIRMENT [None]
